FAERS Safety Report 6882348-4 (Version None)
Quarter: 2010Q3

REPORT INFORMATION
  Report Type: 
  Country: None (occurrence: None)
  Receive Date: 20100729
  Receipt Date: 20100413
  Transmission Date: 20110219
  Serious: No
  Sender: FDA-Public Use
  Company Number: US-MYLANLABS-2010S1005173

PATIENT
  Age: 59 Year
  Sex: Female
  Weight: 116.12 kg

DRUGS (8)
  1. LEVOTHYROXINE SODIUM [Suspect]
     Indication: HYPOTHYROIDISM
     Route: 048
     Dates: start: 20100227
  2. PREDNISONE [Suspect]
  3. PREDNISONE [Suspect]
  4. PREDNISONE [Suspect]
  5. PREDNISONE [Suspect]
  6. CELEBREX [Concomitant]
     Route: 048
  7. VALSARTAN/HYDROCHLOORTHIAZIDE [Concomitant]
     Dosage: 25MG OF HCTZ
     Route: 048
  8. PRAVASTATIN [Concomitant]
     Route: 048

REACTIONS (1)
  - BLOOD GLUCOSE INCREASED [None]
